FAERS Safety Report 16473345 (Version 2)
Quarter: 2019Q3

REPORT INFORMATION
  Report Type: Spontaneous
  Country: US (occurrence: US)
  Receive Date: 20190625
  Receipt Date: 20190709
  Transmission Date: 20191004
  Serious: Yes (Other)
  Sender: FDA-Public Use
  Company Number: US-COOPERSURGICAL, INC.-US-2019CPS001891

PATIENT
  Age: 23 Year
  Sex: Female
  Weight: 75.28 kg

DRUGS (1)
  1. PARAGARD T 380A [Suspect]
     Active Substance: COPPER
     Indication: CONTRACEPTION
     Dosage: UNK
     Route: 015
     Dates: start: 20180807, end: 20190418

REACTIONS (5)
  - Abdominal distension [Unknown]
  - Abdominal pain [Unknown]
  - Drug ineffective [Recovered/Resolved]
  - Abortion spontaneous [Recovered/Resolved]
  - Pregnancy with contraceptive device [Recovered/Resolved]

NARRATIVE: CASE EVENT DATE: 20190418
